FAERS Safety Report 5292049-4 (Version None)
Quarter: 2007Q2

REPORT INFORMATION
  Report Type: 
  Country: None (occurrence: None)
  Receive Date: 20070410
  Receipt Date: 20070329
  Transmission Date: 20071010
  Serious: Yes (Hospitalization)
  Sender: FDA-Public Use
  Company Number: PHHO2006JP01052

PATIENT
  Age: 74 Year
  Sex: Female
  Weight: 48 kg

DRUGS (16)
  1. INTRON A [Suspect]
     Indication: CHRONIC MYELOID LEUKAEMIA
     Dosage: 3 MIU
     Route: 030
     Dates: start: 20031116, end: 20031116
  2. INTRON A [Suspect]
     Dosage: 3 MIU
     Route: 030
     Dates: start: 20031128, end: 20031128
  3. INTRON A [Suspect]
     Dosage: 3 MIU
     Route: 030
     Dates: start: 20031215, end: 20031215
  4. INTRON A [Suspect]
     Dosage: 3 MIU
     Route: 030
     Dates: start: 20031218, end: 20040209
  5. ADENOCK [Concomitant]
     Indication: PROPHYLAXIS
     Dates: start: 20021204, end: 20021228
  6. LOXONIN [Concomitant]
     Dates: start: 20031116, end: 20040206
  7. MUCOSTA [Concomitant]
     Dates: start: 20040131, end: 20040206
  8. AMOBAN [Concomitant]
     Dates: start: 20040611
  9. GLEEVEC [Suspect]
     Indication: CHRONIC MYELOID LEUKAEMIA
     Dosage: 400 MG, QD
     Route: 048
     Dates: start: 20021217, end: 20030118
  10. GLEEVEC [Suspect]
     Dosage: 400 MG, QD
     Route: 048
     Dates: start: 20030201, end: 20030306
  11. GLEEVEC [Suspect]
     Dosage: 300 MG, QD
     Route: 048
     Dates: start: 20030329, end: 20030718
  12. GLEEVEC [Suspect]
     Dosage: 400 MG, QD
     Route: 048
     Dates: start: 20030719, end: 20030919
  13. GLEEVEC [Suspect]
     Dosage: 300 MG, QD
     Route: 048
     Dates: start: 20031018, end: 20031116
  14. GLEEVEC [Suspect]
     Dosage: 200 MG, QD
     Route: 048
     Dates: start: 20031128, end: 20031201
  15. GLEEVEC [Suspect]
     Dosage: 200 MG, QD
     Route: 048
     Dates: start: 20031203, end: 20040209
  16. GLEEVEC [Suspect]
     Dosage: 200 MG, QD
     Route: 048
     Dates: start: 20040313

REACTIONS (1)
  - CEREBRAL INFARCTION [None]
